FAERS Safety Report 14337510 (Version 2)
Quarter: 2018Q1

REPORT INFORMATION
  Report Type: Report from Study
  Country: AU (occurrence: AU)
  Receive Date: 20171229
  Receipt Date: 20180117
  Transmission Date: 20180509
  Serious: Yes (Hospitalization, Other)
  Sender: FDA-Public Use
  Company Number: AU-MYLANLABS-2017M1082274

PATIENT
  Age: 58 Year
  Sex: Male

DRUGS (13)
  1. CLOZAPINE. [Suspect]
     Active Substance: CLOZAPINE
     Dosage: 150 MG, UNK
     Dates: start: 2017
  2. ABILIFY [Concomitant]
     Active Substance: ARIPIPRAZOLE
     Indication: PRODUCT USED FOR UNKNOWN INDICATION
  3. QUETIAPINE. [Suspect]
     Active Substance: QUETIAPINE
     Indication: PRODUCT USED FOR UNKNOWN INDICATION
     Dosage: UNK
  4. CLOPIXOL [Suspect]
     Active Substance: ZUCLOPENTHIXOL ACETATE
     Dosage: 400 MG, UNK
     Dates: start: 2017
  5. SOLIAN [Concomitant]
     Active Substance: AMISULPRIDE
     Indication: PRODUCT USED FOR UNKNOWN INDICATION
  6. QUETIAPINE. [Suspect]
     Active Substance: QUETIAPINE
     Dosage: 300 MG, PM
     Dates: start: 2017
  7. RISPERIDONE. [Suspect]
     Active Substance: RISPERIDONE
     Dosage: 200 MG, PM
  8. RISPERIDONE. [Suspect]
     Active Substance: RISPERIDONE
     Dosage: UNK
  9. RISPERIDONE. [Suspect]
     Active Substance: RISPERIDONE
     Indication: PRODUCT USED FOR UNKNOWN INDICATION
     Dosage: 200 MG, AM
  10. CLOZAPINE. [Suspect]
     Active Substance: CLOZAPINE
     Indication: PRODUCT USED FOR UNKNOWN INDICATION
     Dosage: UNK
  11. QUETIAPINE. [Suspect]
     Active Substance: QUETIAPINE
     Dosage: 200 MG, AM
     Dates: start: 2017
  12. CLOPIXOL [Suspect]
     Active Substance: ZUCLOPENTHIXOL ACETATE
     Indication: PRODUCT USED FOR UNKNOWN INDICATION
     Dosage: 400 MG, UNK
  13. OLANZAPINE. [Suspect]
     Active Substance: OLANZAPINE
     Indication: PRODUCT USED FOR UNKNOWN INDICATION

REACTIONS (22)
  - Schizophrenia [Unknown]
  - Cerebral atrophy [Unknown]
  - Hypertension [Unknown]
  - Eosinophil count increased [Not Recovered/Not Resolved]
  - Muscle rigidity [Unknown]
  - Total cholesterol/HDL ratio increased [Not Recovered/Not Resolved]
  - Lymphocyte count decreased [Recovered/Resolved]
  - Conduction disorder [Unknown]
  - Mitral valve incompetence [Unknown]
  - Blood alkaline phosphatase increased [Not Recovered/Not Resolved]
  - Blood cholesterol decreased [Unknown]
  - Left ventricular hypertrophy [Unknown]
  - Parkinsonian rest tremor [Unknown]
  - Blood triglycerides increased [Recovered/Resolved]
  - Escherichia infection [Unknown]
  - Arrhythmia [Not Recovered/Not Resolved]
  - High density lipoprotein decreased [Not Recovered/Not Resolved]
  - Slow speech [Unknown]
  - Tricuspid valve incompetence [Unknown]
  - Extrapyramidal disorder [Unknown]
  - Platelet count decreased [Recovered/Resolved]
  - Renal disorder [Unknown]

NARRATIVE: CASE EVENT DATE: 20110907
